APPROVED DRUG PRODUCT: ATRALIN
Active Ingredient: TRETINOIN
Strength: 0.05%
Dosage Form/Route: GEL;TOPICAL
Application: N022070 | Product #001 | TE Code: AB
Applicant: DOW PHARMACEUTICAL SCIENCES
Approved: Jul 26, 2007 | RLD: Yes | RS: Yes | Type: RX